FAERS Safety Report 20138580 (Version 1)
Quarter: 2021Q4

REPORT INFORMATION
  Report Type: Spontaneous
  Country: US (occurrence: None)
  Receive Date: 20211202
  Receipt Date: 20211202
  Transmission Date: 20220303
  Serious: Yes (Death, Hospitalization)
  Sender: FDA-Public Use
  Company Number: US-ROCHE-2964088

PATIENT
  Sex: Male

DRUGS (2)
  1. AVASTIN [Suspect]
     Active Substance: BEVACIZUMAB
     Indication: Product used for unknown indication
     Route: 065
  2. TIPIRACIL [Suspect]
     Active Substance: TIPIRACIL
     Indication: Product used for unknown indication
     Route: 065

REACTIONS (24)
  - Adenocarcinoma of colon [Fatal]
  - Dyspnoea exertional [Unknown]
  - Blood bilirubin increased [Unknown]
  - Hypotension [Unknown]
  - Weight decreased [Unknown]
  - Fatigue [Unknown]
  - Decreased appetite [Unknown]
  - Localised infection [Unknown]
  - Pyrexia [Unknown]
  - Hepatic cirrhosis [Unknown]
  - Diarrhoea [Unknown]
  - Cough [Unknown]
  - Anaemia [Unknown]
  - Insomnia [Unknown]
  - Arthralgia [Unknown]
  - Deep vein thrombosis [Unknown]
  - Inguinal hernia [Unknown]
  - Anxiety [Unknown]
  - Nausea [Unknown]
  - Thrombocytosis [Unknown]
  - Thrombocytopenia [Unknown]
  - Neuropathy peripheral [Unknown]
  - Gout [Unknown]
  - Asthenia [Unknown]

NARRATIVE: CASE EVENT DATE: 20201221
